FAERS Safety Report 9709756 (Version 1)
Quarter: 2013Q4

REPORT INFORMATION
  Report Type: Spontaneous
  Country: CH (occurrence: CH)
  Receive Date: 20131126
  Receipt Date: 20131126
  Transmission Date: 20140711
  Serious: Yes (Hospitalization, Other)
  Sender: FDA-Public Use
  Company Number: CH-009507513-1311CHE010102

PATIENT
  Age: 24 Year
  Sex: Male

DRUGS (5)
  1. REMERON [Suspect]
     Dosage: 2 DF, 90 MG, ONCE
     Route: 048
     Dates: start: 20130822, end: 20130822
  2. LORAZEPAM [Suspect]
     Dosage: UNK
     Route: 048
     Dates: start: 20130822, end: 20130822
  3. PIPAMPERONE [Suspect]
     Dosage: 280 MG, UNK, MAXIMAL AMOUNT
     Route: 048
     Dates: start: 20130822, end: 20130822
  4. QUETIAPINE FUMARATE [Suspect]
     Dosage: UNK
     Route: 048
     Dates: start: 20130822, end: 20130822
  5. ALCOHOL [Suspect]
     Dosage: UNK
     Route: 048
     Dates: start: 20130822, end: 20130822

REACTIONS (3)
  - Coma [Recovered/Resolved]
  - Suicide attempt [Recovered/Resolved]
  - Intentional overdose [Unknown]
